FAERS Safety Report 5258517-6 (Version None)
Quarter: 2007Q1

REPORT INFORMATION
  Report Type: 
  Country: None (occurrence: None)
  Receive Date: 20070305
  Receipt Date: 20070216
  Transmission Date: 20070707
  Serious: Yes (Other)
  Sender: FDA-Public Use
  Company Number: 2007RR-05883

PATIENT
  Age: 53 Year
  Sex: Male

DRUGS (1)
  1. IBUPROFEN [Suspect]
     Dosage: 2400-3600MG,QD,

REACTIONS (3)
  - DRUG ABUSER [None]
  - URINARY BLADDER ADENOMA [None]
  - URINARY TRACT DISORDER [None]
